FAERS Safety Report 21564008 (Version 1)
Quarter: 2022Q4

REPORT INFORMATION
  Report Type: Report from Study
  Country: US (occurrence: None)
  Receive Date: 20221108
  Receipt Date: 20221108
  Transmission Date: 20230113
  Serious: Yes (Hospitalization, Other)
  Sender: FDA-Public Use
  Company Number: US-ROCHE-3194140

PATIENT
  Age: 63 Year
  Sex: Male
  Weight: 101 kg

DRUGS (5)
  1. ATEZOLIZUMAB [Suspect]
     Active Substance: ATEZOLIZUMAB
     Indication: Bladder transitional cell carcinoma
     Dosage: 1200 MG IV ON DAY 1
     Route: 041
     Dates: start: 20210707
  2. CISPLATIN [Suspect]
     Active Substance: CISPLATIN
     Indication: Bladder transitional cell carcinoma
     Dosage: THREE DOSES DELIVERED, EACH 80 MG (35 MG/M2 IV WEEKLY FOR SIX WEEKS)?11/AUG/2021
     Route: 042
     Dates: start: 20210707
  3. TUMS [Suspect]
     Active Substance: CALCIUM CARBONATE
     Indication: Product used for unknown indication
     Route: 065
  4. PEPTO-BISMOL [Concomitant]
     Active Substance: BISMUTH SUBSALICYLATE
  5. DEXAMETHASONE [Concomitant]
     Active Substance: DEXAMETHASONE
     Route: 065

REACTIONS (5)
  - Abdominal pain upper [Recovered/Resolved]
  - Hypercalcaemia [Recovered/Resolved]
  - Chest pain [Recovered/Resolved]
  - Hyperglycaemia [Recovered/Resolved]
  - Non-cardiac chest pain [Unknown]

NARRATIVE: CASE EVENT DATE: 20210817
